FAERS Safety Report 9445574 (Version 2)
Quarter: 2013Q3

REPORT INFORMATION
  Report Type: Spontaneous
  Country: US (occurrence: US)
  Receive Date: 20130807
  Receipt Date: 20130820
  Transmission Date: 20140515
  Serious: No
  Sender: FDA-Public Use
  Company Number: US-VERTEX PHARMACEUTICALS INC-2013-008595

PATIENT
  Age: 33 Year
  Sex: Female
  Weight: 51.8 kg

DRUGS (7)
  1. KALYDECO [Suspect]
     Indication: CYSTIC FIBROSIS
     Dosage: 150 MG, BID
     Route: 048
     Dates: start: 20130218
  2. ZITHROMAX [Concomitant]
     Dosage: 3 TIMES/WEEK
  3. CAYSTON [Concomitant]
     Dosage: 75 MG/ML ONCE EVERY 8 HOURS EVERY OTHER MONTH
  4. PULMICORT [Concomitant]
     Dosage: 0.5MG/2ML, QD
  5. PULMOZYME [Concomitant]
     Dosage: 2.5 MG, QD
  6. ZENPEP [Concomitant]
  7. COLISTIN [Concomitant]
     Dosage: 150 MG, BID EVERY OTHER MONTH

REACTIONS (1)
  - Muscle spasms [Recovered/Resolved]
